FAERS Safety Report 16933954 (Version 3)
Quarter: 2022Q1

REPORT INFORMATION
  Report Type: Report from Study
  Country: FR (occurrence: FR)
  Receive Date: 20191018
  Receipt Date: 20220130
  Transmission Date: 20220423
  Serious: Yes (Death, Hospitalization, Other)
  Sender: FDA-Public Use
  Company Number: FR-JAZZ-2019-FR-014354

PATIENT

DRUGS (6)
  1. DEFITELIO [Suspect]
     Active Substance: DEFIBROTIDE SODIUM
     Indication: Prophylaxis
     Dosage: 25 MG/KG, QD
     Route: 042
     Dates: start: 20170615, end: 20170627
  2. URSODIOL [Concomitant]
     Active Substance: URSODIOL
     Indication: Prophylaxis
  3. CYCLOPHOSPHAMIDE [Concomitant]
     Active Substance: CYCLOPHOSPHAMIDE
     Indication: Product used for unknown indication
  4. CYTARABINE [Concomitant]
     Active Substance: CYTARABINE
     Indication: Product used for unknown indication
  5. ACTINOMYCIN D [Concomitant]
     Active Substance: DACTINOMYCIN
     Indication: Product used for unknown indication
  6. BUSULFAN [Concomitant]
     Active Substance: BUSULFAN
     Indication: Product used for unknown indication

REACTIONS (12)
  - Thrombocytopenia [Unknown]
  - Arthralgia [Recovered/Resolved with Sequelae]
  - Pericardial effusion [Recovered/Resolved]
  - Hepatitis acute [Recovered/Resolved]
  - Pleural effusion [Recovered/Resolved]
  - Pelvic pain [Recovered/Resolved with Sequelae]
  - Hypotension [Recovered/Resolved]
  - Chronic graft versus host disease [Unknown]
  - Osteitis [Recovered/Resolved with Sequelae]
  - Pneumonia [Recovered/Resolved]
  - Ewing^s sarcoma [Fatal]
  - Off label use [Unknown]

NARRATIVE: CASE EVENT DATE: 20170615
